FAERS Safety Report 9685129 (Version 1)
Quarter: 2013Q4

REPORT INFORMATION
  Report Type: Spontaneous
  Country: CA (occurrence: CA)
  Receive Date: 20131113
  Receipt Date: 20131113
  Transmission Date: 20140711
  Serious: Yes (Hospitalization)
  Sender: FDA-Public Use
  Company Number: CA-ASTRAZENECA-2013SE81120

PATIENT
  Age: 77 Year
  Sex: Female
  Weight: 83 kg

DRUGS (12)
  1. BRILINTA [Suspect]
     Route: 048
  2. BRILINTA [Suspect]
     Route: 048
  3. ASPIRIN [Concomitant]
  4. ATIVAN [Concomitant]
  5. EFFEXOR XR [Concomitant]
  6. IMDUR [Concomitant]
  7. LASIX [Concomitant]
  8. LIPITOR [Concomitant]
  9. LOPRESSOR [Concomitant]
  10. LYRICA [Concomitant]
  11. PANTALOC [Concomitant]
  12. QUETIAPINE [Concomitant]

REACTIONS (4)
  - Chest pain [Recovered/Resolved]
  - Choking sensation [Recovered/Resolved]
  - Fatigue [Recovered/Resolved]
  - Dyspnoea [Recovered/Resolved]
